FAERS Safety Report 22895430 (Version 5)
Quarter: 2024Q1

REPORT INFORMATION
  Report Type: Spontaneous
  Country: US (occurrence: US)
  Receive Date: 20230901
  Receipt Date: 20240111
  Transmission Date: 20240410
  Serious: No
  Sender: FDA-Public Use
  Company Number: US-PFIZER INC-PV202300147514

PATIENT
  Age: 2 Year
  Sex: Female
  Weight: 9.977 kg

DRUGS (2)
  1. GENOTROPIN [Suspect]
     Active Substance: SOMATROPIN
     Indication: Turner^s syndrome
     Dosage: 0.3 MG, DAILY
  2. GENOTROPIN [Suspect]
     Active Substance: SOMATROPIN
     Dosage: 4 MG/DAY

REACTIONS (3)
  - Liquid product physical issue [Recovered/Resolved]
  - Product reconstitution quality issue [Recovered/Resolved]
  - Device defective [Recovered/Resolved]
